FAERS Safety Report 25744018 (Version 3)
Quarter: 2025Q4

REPORT INFORMATION
  Report Type: Report from Study
  Country: EU (occurrence: EU)
  Receive Date: 20250831
  Receipt Date: 20251127
  Transmission Date: 20260117
  Serious: Yes (Other)
  Sender: ABBVIE
  Company Number: EU-ABBVIE-6410785

PATIENT
  Age: 73 Year
  Sex: Female

DRUGS (3)
  1. FOSCARBIDOPA\FOSLEVODOPA [Suspect]
     Active Substance: FOSCARBIDOPA\FOSLEVODOPA
     Indication: Parkinson^s disease
     Dosage: CRN: 0.16 ML/H; CR: 0.22 ML/H; CRH: 0.24 ML/H; ED: 0.15 ML LAST ADMIN DATE: 2025
     Route: 058
     Dates: start: 20250701
  2. FOSCARBIDOPA\FOSLEVODOPA [Suspect]
     Active Substance: FOSCARBIDOPA\FOSLEVODOPA
     Dosage: FIST ADMIN DATE: 2025. CRH: 0.47 ML/H, ED: 0.15 ML. LAST ADMIN DATE: 2025
     Route: 058
  3. FOSCARBIDOPA\FOSLEVODOPA [Suspect]
     Active Substance: FOSCARBIDOPA\FOSLEVODOPA
     Dosage: FIRST ADMIN DATE: 2025. CR: 0.44ML/H; CRH: 0.47ML/H
     Route: 058

REACTIONS (8)
  - Femoral neck fracture [Unknown]
  - Impaired quality of life [Not Recovered/Not Resolved]
  - Fall [Unknown]
  - Device use issue [Unknown]
  - Asthenia [Not Recovered/Not Resolved]
  - Fatigue [Not Recovered/Not Resolved]
  - Hypersomnia [Not Recovered/Not Resolved]
  - Device issue [Recovered/Resolved]

NARRATIVE: CASE EVENT DATE: 20250101
